FAERS Safety Report 5380117-8 (Version None)
Quarter: 2007Q3

REPORT INFORMATION
  Report Type: 
  Country: None (occurrence: None)
  Receive Date: 20070706
  Receipt Date: 20070426
  Transmission Date: 20080115
  Serious: No
  Sender: FDA-Public Use
  Company Number: A0648863A

PATIENT
  Age: 66 Year
  Sex: Female

DRUGS (5)
  1. TYKERB [Suspect]
     Indication: BREAST CANCER
     Dosage: 5TAB PER DAY
     Route: 048
     Dates: start: 20070424
  2. XELODA [Concomitant]
  3. ADVAIR DISKUS 100/50 [Concomitant]
  4. THEO-24 [Concomitant]
  5. SPIRIVA [Concomitant]

REACTIONS (1)
  - DIARRHOEA [None]
